FAERS Safety Report 20236600 (Version 1)
Quarter: 2021Q4

REPORT INFORMATION
  Report Type: Spontaneous
  Country: FR (occurrence: FR)
  Receive Date: 20211228
  Receipt Date: 20211228
  Transmission Date: 20220303
  Serious: Yes (Hospitalization)
  Sender: FDA-Public Use
  Company Number: FR-BRISTOL-MYERS SQUIBB COMPANY-BMS-2021-140320

PATIENT
  Age: 68 Year
  Sex: Male
  Weight: 61 kg

DRUGS (37)
  1. ELIQUIS [Suspect]
     Active Substance: APIXABAN
     Indication: Cerebrovascular accident prophylaxis
     Dosage: 2.5 MILLIGRAM, BID
     Route: 048
     Dates: end: 20211118
  2. ELIQUIS [Suspect]
     Active Substance: APIXABAN
     Indication: Transient ischaemic attack
     Dosage: 5 MILLIGRAM, BID
     Route: 048
     Dates: start: 20211119, end: 20211124
  3. POMALIDOMIDE [Suspect]
     Active Substance: POMALIDOMIDE
     Indication: Plasma cell myeloma
     Dosage: UNK
     Route: 065
  4. DEXAMETHASONE [Suspect]
     Active Substance: DEXAMETHASONE
     Indication: Plasma cell myeloma
     Dosage: 10 MILLIGRAM, QD
     Route: 042
     Dates: start: 20211120, end: 20211121
  5. DEXAMETHASONE [Suspect]
     Active Substance: DEXAMETHASONE
     Indication: Cytokine release syndrome
     Dosage: 10 MILLIGRAM, BID
     Route: 042
     Dates: start: 20211123, end: 20211124
  6. DEXAMETHASONE [Suspect]
     Active Substance: DEXAMETHASONE
     Indication: Blood creatinine increased
  7. DARATUMUMAB [Suspect]
     Active Substance: DARATUMUMAB
     Indication: Plasma cell myeloma
     Dosage: UNK
     Route: 065
  8. CYCLOPHOSPHAMIDE [Concomitant]
     Active Substance: CYCLOPHOSPHAMIDE
     Indication: Plasma cell myeloma
     Dosage: UNK
     Route: 065
  9. FLUDARABINE [Concomitant]
     Active Substance: FLUDARABINE PHOSPHATE
     Indication: Plasma cell myeloma
     Dosage: UNK
     Route: 065
  10. SULFAMETHOXAZOLE [Concomitant]
     Active Substance: SULFAMETHOXAZOLE
     Indication: Infection prophylaxis
     Dosage: 800 MILLIGRAM,3 IN 1 WK
     Route: 048
     Dates: start: 20211110
  11. TRIMETHOPRIM [Concomitant]
     Active Substance: TRIMETHOPRIM
     Indication: Infection prophylaxis
     Dosage: 160 MILLIGRAM,3 IN 1 WK
     Route: 048
     Dates: start: 20211110
  12. LANSOPRAZOLE [Concomitant]
     Active Substance: LANSOPRAZOLE
     Indication: Gastritis prophylaxis
     Dosage: 5 MILLIGRAM, QD
     Route: 048
     Dates: start: 20211110, end: 20211119
  13. TRAMADOL HYDROCHLORIDE [Concomitant]
     Active Substance: TRAMADOL HYDROCHLORIDE
     Indication: Bone pain
     Dosage: 50 MILLIGRAM
     Route: 042
     Dates: start: 20211111
  14. TRAMADOL HYDROCHLORIDE [Concomitant]
     Active Substance: TRAMADOL HYDROCHLORIDE
     Dosage: 200 MILLIGRAM
     Route: 042
     Dates: start: 20211114, end: 20211118
  15. TRAMADOL HYDROCHLORIDE [Concomitant]
     Active Substance: TRAMADOL HYDROCHLORIDE
     Dosage: 100 MILLIGRAM
     Route: 042
     Dates: start: 20211118, end: 20211119
  16. ACUPAN [Concomitant]
     Active Substance: NEFOPAM HYDROCHLORIDE
     Indication: Bone pain
     Dosage: 20 MILLIGRAM
     Route: 042
     Dates: start: 20211112
  17. PRIMPERAN [Concomitant]
     Active Substance: METOCLOPRAMIDE HYDROCHLORIDE
     Indication: Prophylaxis of nausea and vomiting
     Dosage: 10 MILLIGRAM
     Route: 042
     Dates: start: 20211113
  18. DUPHALAC [Concomitant]
     Active Substance: LACTULOSE
     Indication: Constipation prophylaxis
     Dosage: 10 GRAM
     Route: 048
     Dates: start: 20211113
  19. LEUCOVORIN CALCIUM [Concomitant]
     Active Substance: LEUCOVORIN CALCIUM
     Indication: Anaemia prophylaxis
     Dosage: 25 MG,1 IN 1 WK
     Route: 048
     Dates: start: 20211114
  20. SODIUM BICARBONATE [Concomitant]
     Active Substance: SODIUM BICARBONATE
     Indication: Blood creatinine increased
     Dosage: 1 LITER
     Route: 042
     Dates: start: 20211119, end: 20211121
  21. SODIUM BICARBONATE [Concomitant]
     Active Substance: SODIUM BICARBONATE
     Dosage: 500 MILLILITER
     Route: 042
     Dates: start: 20211121, end: 20211121
  22. SODIUM BICARBONATE [Concomitant]
     Active Substance: SODIUM BICARBONATE
     Dosage: 500 MILLILITER
     Route: 042
     Dates: start: 20211123, end: 20211124
  23. SODIUM BICARBONATE [Concomitant]
     Active Substance: SODIUM BICARBONATE
     Dosage: 1 LITER
     Route: 042
     Dates: start: 20211124, end: 20211125
  24. TOCILIZUMAB [Concomitant]
     Active Substance: TOCILIZUMAB
     Indication: Cytokine release syndrome
     Dosage: 500 MILLIGRAM, QD
     Route: 042
     Dates: start: 20211121, end: 20211122
  25. TOCILIZUMAB [Concomitant]
     Active Substance: TOCILIZUMAB
     Dosage: 500 MILLIGRAM, BID
     Route: 042
     Dates: start: 20211123, end: 20211123
  26. TOCILIZUMAB [Concomitant]
     Active Substance: TOCILIZUMAB
     Dosage: 500 MILLIGRAM, QD
     Route: 042
     Dates: start: 20211124, end: 20211124
  27. SODIUM CHLORIDE [Concomitant]
     Active Substance: SODIUM CHLORIDE
     Indication: Hypotension
     Dosage: 1000 MILLILITER
     Route: 042
     Dates: start: 20211121, end: 20211123
  28. SODIUM CHLORIDE [Concomitant]
     Active Substance: SODIUM CHLORIDE
     Indication: Prophylaxis
     Dosage: 1000 MILLILITER
     Route: 042
     Dates: start: 20211123, end: 20211124
  29. CEFTRIAXONE [Concomitant]
     Active Substance: CEFTRIAXONE
     Indication: Infection prophylaxis
     Dosage: 2 GRAM, QD
     Route: 042
     Dates: start: 20211121, end: 20211123
  30. ONDANSETRON [Concomitant]
     Active Substance: ONDANSETRON
     Indication: Prophylaxis of nausea and vomiting
     Dosage: 8 MILLIGRAM
     Route: 042
     Dates: start: 20211122
  31. ACETAMINOPHEN [Concomitant]
     Active Substance: ACETAMINOPHEN
     Indication: Pyrexia
     Dosage: 1 MILLIGRAM, BID
     Route: 042
     Dates: start: 20211122, end: 20211124
  32. PIPERACILLIN [Concomitant]
     Active Substance: PIPERACILLIN
     Indication: Infection prophylaxis
     Dosage: 4 MILLIGRAM
     Route: 042
     Dates: start: 20211123, end: 20211126
  33. TAZOBACTAM [Concomitant]
     Active Substance: TAZOBACTAM
     Indication: Infection prophylaxis
     Dosage: 500 MILLIGRAM
     Route: 042
     Dates: start: 20211123, end: 20211126
  34. HEPARIN SODIUM [Concomitant]
     Active Substance: HEPARIN SODIUM
     Indication: Thrombosis prophylaxis
     Dosage: 5000 INTERNATIONAL UNIT
     Route: 042
     Dates: start: 20211125, end: 20211126
  35. VALACYCLOVIR HYDROCHLORIDE [Concomitant]
     Active Substance: VALACYCLOVIR HYDROCHLORIDE
     Indication: Antiviral prophylaxis
     Dosage: 500 MILLIGRAM, BID
     Route: 048
  36. SODIUM ALGINATE\SODIUM BICARBONATE [Concomitant]
     Active Substance: SODIUM ALGINATE\SODIUM BICARBONATE
     Indication: Gastritis prophylaxis
     Dosage: 500/267 MG (ONCE)
     Route: 048
     Dates: start: 20211128, end: 20211128
  37. CLOTTAFACT [Concomitant]
     Active Substance: FIBRINOGEN HUMAN
     Indication: Blood fibrinogen decreased
     Dosage: (1.5 GM,ONCE)
     Route: 042
     Dates: start: 20211128, end: 20211128

REACTIONS (1)
  - Lymphocyte count increased [Not Recovered/Not Resolved]

NARRATIVE: CASE EVENT DATE: 20211128
